FAERS Safety Report 5248679-9 (Version None)
Quarter: 2007Q1

REPORT INFORMATION
  Report Type: 
  Country: None (occurrence: None)
  Receive Date: 20070226
  Receipt Date: 20070226
  Transmission Date: 20070707
  Serious: No
  Sender: FDA-Public Use
  Company Number: None

PATIENT
  Age: 81 Year
  Sex: Female
  Weight: 76.2 kg

DRUGS (25)
  1. HEPARIN [Suspect]
     Indication: THROMBOSIS PROPHYLAXIS
     Dosage: AS ABOVE SC/IV
     Route: 042
     Dates: start: 20061016, end: 20061022
  2. WARFARIN SODIUM [Suspect]
     Indication: CEREBROVASCULAR ACCIDENT PROPHYLAXIS
     Dosage: 5 MG AT BEDTIME DAILY ORALLY
     Route: 048
     Dates: start: 20061019, end: 20061021
  3. ATENOLOL [Concomitant]
  4. LASIX [Concomitant]
  5. HYDRALAZINE HCL [Concomitant]
  6. LISINOPRIL [Concomitant]
  7. POTASSIUM CHLORIDE [Concomitant]
  8. NORVASC [Concomitant]
  9. GLIPIZIDE [Concomitant]
  10. LIPITOR [Concomitant]
  11. ZANTAC [Concomitant]
  12. CALCIUM [Concomitant]
  13. VITAMIN D [Concomitant]
  14. DIGOXIN [Concomitant]
  15. ROSUVASTATIN CALCIUM [Concomitant]
  16. FAMOTIDINE [Concomitant]
  17. DILTIAZEM CD [Concomitant]
  18. CEFTRIAXONE [Concomitant]
  19. AZITHROMYCIN [Concomitant]
  20. ASPIRIN [Concomitant]
  21. OXYCODONE HCL [Concomitant]
  22. IPRATROPIUM NEB [Concomitant]
  23. INSULIN LISPRO [Concomitant]
  24. ACETAMINOPHEN [Concomitant]
  25. POTASSIUM CHLORIDE [Concomitant]

REACTIONS (4)
  - ATRIAL FIBRILLATION [None]
  - HAEMATOCRIT DECREASED [None]
  - HAEMOGLOBIN DECREASED [None]
  - RETROPERITONEAL HAEMORRHAGE [None]
